FAERS Safety Report 22312263 (Version 1)
Quarter: 2023Q2

REPORT INFORMATION
  Report Type: Spontaneous
  Country: US (occurrence: US)
  Receive Date: 20230512
  Receipt Date: 20230512
  Transmission Date: 20230722
  Serious: Yes (Other)
  Sender: FDA-Public Use
  Company Number: US-JNJFOC-20230501578

PATIENT
  Age: 64 Year
  Sex: Male
  Weight: 87 kg

DRUGS (1)
  1. CARVYKTI [Suspect]
     Active Substance: CILTACABTAGENE AUTOLEUCEL
     Indication: Plasma cell myeloma
     Dosage: ^0.7 X 10 TO THE 6TH? CARS
     Route: 042
     Dates: start: 20221202

REACTIONS (3)
  - Diaphragm muscle weakness [Unknown]
  - Neurotoxicity [Unknown]
  - Facial paralysis [Unknown]

NARRATIVE: CASE EVENT DATE: 20221218
